FAERS Safety Report 22596051 (Version 1)
Quarter: 2023Q2

REPORT INFORMATION
  Report Type: Spontaneous
  Country: GB (occurrence: GB)
  Receive Date: 20230613
  Receipt Date: 20230613
  Transmission Date: 20230721
  Serious: Yes (Hospitalization)
  Sender: FDA-Public Use
  Company Number: None

PATIENT
  Age: 62 Year
  Sex: Male

DRUGS (12)
  1. OMEPRAZOLE [Suspect]
     Active Substance: OMEPRAZOLE
     Indication: Product used for unknown indication
     Dosage: 20 MILLIGRAM, QD (ONE TO BE TAKEN EACH DAY)
     Route: 065
     Dates: start: 20221129
  2. AMLODIPINE [Concomitant]
     Active Substance: AMLODIPINE BESYLATE
     Dosage: 5 MILLIGRAM, QD(ONE TO BE TAKEN EACH DAY)
     Route: 065
     Dates: start: 20221129
  3. AMOXICILLIN [Concomitant]
     Active Substance: AMOXICILLIN
     Dosage: 500 MILLIGRAM, TID(ONE TO BE TAKEN THREE TIMES A DAY 21 CAPSULE)
     Route: 065
     Dates: start: 20221221
  4. ATENOLOL [Concomitant]
     Active Substance: ATENOLOL
     Dosage: 50 MILLIGRAM, QD(ONE TO BE TAKEN EACH DAY)
     Route: 065
     Dates: start: 20221129
  5. ATORVASTATIN [Concomitant]
     Active Substance: ATORVASTATIN
     Dosage: 20 MILLIGRAM, QD(TAKE ONE DAILY)
     Route: 065
     Dates: start: 20221129
  6. DOXYCYCLINE [Concomitant]
     Active Substance: DOXYCYCLINE
     Dosage: 100 MILLIGRAM (TWO TO BE TAKEN ON THE FIRST DAY THEN ONE TO BE TAKEN EACH DAY 8 CAPSULE)
     Route: 065
     Dates: start: 20221220
  7. FUROSEMIDE [Concomitant]
     Active Substance: FUROSEMIDE
     Dosage: 20 MILLIGRAM, QD(ONE TO BE TAKEN EACH MORNING 56 TABLET)
     Route: 065
     Dates: start: 20220725
  8. IBUPROFEN [Concomitant]
     Active Substance: IBUPROFEN
     Dosage: UNK
     Route: 065
  9. METFORMIN [Concomitant]
     Active Substance: METFORMIN HYDROCHLORIDE
     Dosage: 500 MILLIGRAM, BID(ONE TO BE TAKEN TWICE A DAY MORNING AND NIGHT)
     Route: 065
     Dates: start: 20221129
  10. ACETAMINOPHEN [Concomitant]
     Active Substance: ACETAMINOPHEN
     Dosage: UNK
     Route: 065
  11. PERINDOPRIL [Concomitant]
     Active Substance: PERINDOPRIL
     Dosage: 8 MILLIGRAM, QD(TAKE ONE DAILY)
     Route: 065
     Dates: start: 20221129
  12. SILDENAFIL [Concomitant]
     Active Substance: SILDENAFIL
     Dosage: 100 MILLIGRAM (ONE TO BE TAKEN AS DIRECTED 32 TABLET)
     Route: 065

REACTIONS (1)
  - Electrolyte imbalance [Recovered/Resolved]
